FAERS Safety Report 15220310 (Version 1)
Quarter: 2018Q3

REPORT INFORMATION
  Report Type: Spontaneous
  Country: US (occurrence: US)
  Receive Date: 20180731
  Receipt Date: 20180731
  Transmission Date: 20181010
  Serious: No
  Sender: FDA-Public Use
  Company Number: US-AMGEN-USASP2018101791

PATIENT
  Age: 45 Year
  Sex: Female

DRUGS (2)
  1. ENBREL [Suspect]
     Active Substance: ETANERCEPT
     Indication: ANKYLOSING SPONDYLITIS
     Dosage: UNK UNK, QWK
     Route: 065
     Dates: start: 201807
  2. ENBREL [Suspect]
     Active Substance: ETANERCEPT
     Indication: RHEUMATOID ARTHRITIS

REACTIONS (6)
  - Headache [Unknown]
  - Injection site pain [Unknown]
  - Urticaria [Unknown]
  - Feeling abnormal [Unknown]
  - Injection site haemorrhage [Unknown]
  - Dysgeusia [Unknown]

NARRATIVE: CASE EVENT DATE: 20180724
